FAERS Safety Report 4413545-5 (Version None)
Quarter: 2004Q2

REPORT INFORMATION
  Report Type: 
  Country: None (occurrence: None)
  Receive Date: 20040630
  Receipt Date: 20040310
  Transmission Date: 20050107
  Serious: No
  Sender: FDA-Public Use
  Company Number: 04P-163-0252917

PATIENT
  Age: 63 Year
  Sex: Male
  Weight: 106.1417 kg

DRUGS (5)
  1. HUMIRA [Suspect]
     Indication: RHEUMATOID ARTHRITIS
     Dosage: 40 MG, 1 IN 2 WK, SUBCUTANEOUS
     Route: 058
     Dates: start: 20040206
  2. PREDNISONE TAB [Concomitant]
  3. METHOTREXATE [Concomitant]
  4. CELECOXIB [Concomitant]
  5. ATORVASTATIN CALCIUM [Concomitant]

REACTIONS (3)
  - INJECTION SITE BURNING [None]
  - NASAL CONGESTION [None]
  - NASOPHARYNGITIS [None]
